FAERS Safety Report 9219521 (Version 1)
Quarter: 2013Q1

REPORT INFORMATION
  Report Type: Spontaneous
  Country: US (occurrence: None)
  Receive Date: 20120828
  Receipt Date: 20120828
  Transmission Date: 20140127
  Serious: Yes (Other)
  Sender: FDA-Public Use
  Company Number: 2011BH025676

PATIENT
  Sex: Male

DRUGS (1)
  1. KIOVIG_LIQUID_10%_SOLUTION FOR INFUSION_VAIL, GLASS (IMMUNOGLOBULIN, NORMAL HUMAN) (UN-MAPPED CODE) [Suspect]
     Indication: PRODUCT USED FOR UNKNOWN INDICATION

REACTIONS (1)
  - Cerebrovascular accident [None]
